FAERS Safety Report 4740603-8 (Version None)
Quarter: 2005Q3

REPORT INFORMATION
  Report Type: 
  Country: None (occurrence: None)
  Receive Date: 20050801
  Receipt Date: 20040609
  Transmission Date: 20060218
  Serious: Yes (Life-Threatening, Hospitalization)
  Sender: FDA-Public Use
  Company Number: 2004-06-0418

PATIENT
  Age: 53 Year
  Sex: Female
  Weight: 79.8331 kg

DRUGS (2)
  1. REBETOL [Suspect]
     Indication: HEPATITIS C
     Dosage: ORAL
     Route: 048
     Dates: start: 20040202, end: 20040222
  2. INFERGEN [Suspect]
     Indication: HEPATITIS C
     Dosage: 15 MCG QD SUBCUTANEOUS
     Route: 058
     Dates: start: 20040202, end: 20040222

REACTIONS (5)
  - BLOOD GLUCOSE INCREASED [None]
  - CHILLS [None]
  - NAUSEA [None]
  - TREMOR [None]
  - VOMITING [None]
